FAERS Safety Report 20002990 (Version 2)
Quarter: 2021Q4

REPORT INFORMATION
  Report Type: Spontaneous
  Country: ES (occurrence: ES)
  Receive Date: 20211027
  Receipt Date: 20211028
  Transmission Date: 20220303
  Serious: Yes (Hospitalization, Other)
  Sender: FDA-Public Use
  Company Number: ES-STADA-234641

PATIENT
  Age: 26 Year
  Sex: Female

DRUGS (14)
  1. FILGRASTIM [Suspect]
     Active Substance: FILGRASTIM
     Indication: Acute myeloid leukaemia
     Dosage: UNK
     Route: 065
  2. CYTARABINE [Suspect]
     Active Substance: CYTARABINE
     Indication: Acute myeloid leukaemia
     Dosage: HIGH DOSE
     Route: 065
  3. CYTARABINE [Suspect]
     Active Substance: CYTARABINE
     Dosage: UNK
  4. IDARUBICIN HYDROCHLORIDE [Suspect]
     Active Substance: IDARUBICIN HYDROCHLORIDE
     Indication: Acute myeloid leukaemia
     Dosage: UNK
     Route: 065
  5. FLUDARABINE [Suspect]
     Active Substance: FLUDARABINE PHOSPHATE
     Indication: Acute myeloid leukaemia
     Dosage: UNK
     Route: 065
  6. QUIZARTINIB [Suspect]
     Active Substance: QUIZARTINIB
     Indication: Acute myeloid leukaemia
     Dosage: 40 MG
     Route: 065
  7. AZACITIDINE [Suspect]
     Active Substance: AZACITIDINE
     Indication: Acute myeloid leukaemia
     Dosage: 75 MG/M2, DAYS 1-7 OF EACH 28-DAY CYCLE
     Dates: start: 202007
  8. AZACITIDINE [Suspect]
     Active Substance: AZACITIDINE
     Dosage: 75 MG/M2, TWO CYCLES
     Route: 065
     Dates: start: 202011
  9. AZACITIDINE [Suspect]
     Active Substance: AZACITIDINE
     Dosage: THIRD CYCLE
     Route: 065
     Dates: start: 2021
  10. VENETOCLAX [Suspect]
     Active Substance: VENETOCLAX
     Indication: Acute myeloid leukaemia
     Dosage: 100 MG, UP TITRATED TO 400MG
     Route: 065
     Dates: start: 202010
  11. VENETOCLAX [Suspect]
     Active Substance: VENETOCLAX
     Dosage: TWO CYCLES
     Route: 065
     Dates: start: 202011
  12. VENETOCLAX [Suspect]
     Active Substance: VENETOCLAX
     Dosage: 100 MG 1X/DAY, NEXT CYCLE
     Route: 065
     Dates: start: 2021
  13. VENETOCLAX [Suspect]
     Active Substance: VENETOCLAX
     Dosage: 50 MG, THIRD CYCLE: DOSE UP TITRATED TO 70MG
     Route: 065
     Dates: start: 2021
  14. POSACONAZOLE [Concomitant]
     Active Substance: POSACONAZOLE
     Indication: Antifungal prophylaxis
     Dosage: UNK
     Route: 065

REACTIONS (7)
  - Bronchopulmonary aspergillosis [Unknown]
  - Graft versus host disease in skin [Unknown]
  - Paronychia [Unknown]
  - Localised infection [Unknown]
  - Myelosuppression [Unknown]
  - Asthenia [Unknown]
  - Febrile neutropenia [Unknown]
